FAERS Safety Report 15818964 (Version 1)
Quarter: 2019Q1

REPORT INFORMATION
  Report Type: Other
  Country: IT (occurrence: IT)
  Receive Date: 20190114
  Receipt Date: 20190114
  Transmission Date: 20190417
  Serious: Yes (Life-Threatening, Hospitalization, Other)
  Sender: FDA-Public Use
  Company Number: IT-APOTEX-2019AP005240

PATIENT
  Age: 54 Year
  Sex: Male

DRUGS (4)
  1. QUETIAPINE. [Suspect]
     Active Substance: QUETIAPINE
     Indication: SELF-INJURIOUS IDEATION
     Route: 048
  2. RIVOTRIL [Suspect]
     Active Substance: CLONAZEPAM
     Indication: SELF-INJURIOUS IDEATION
     Dosage: 2.5 MG/ML
     Route: 048
  3. DEPAKIN CHRONO                     /00228502/ [Suspect]
     Active Substance: VALPROATE SODIUM
     Indication: SELF-INJURIOUS IDEATION
     Dosage: 300 MG, UNK
     Route: 048
  4. CARBOLITHIUM [Suspect]
     Active Substance: LITHIUM CARBONATE
     Indication: SELF-INJURIOUS IDEATION
     Dosage: 150 MG, UNK
     Route: 048

REACTIONS (4)
  - Toxicity to various agents [Unknown]
  - Coma [Unknown]
  - Drug abuse [Unknown]
  - Loss of consciousness [Unknown]

NARRATIVE: CASE EVENT DATE: 20181109
